FAERS Safety Report 5874592-X (Version None)
Quarter: 2008Q3

REPORT INFORMATION
  Report Type: 
  Country: None (occurrence: None)
  Receive Date: 20080905
  Receipt Date: 20080905
  Transmission Date: 20090109
  Serious: Yes (Hospitalization)
  Sender: FDA-Public Use
  Company Number: None

PATIENT
  Sex: Female
  Weight: 54 kg

DRUGS (4)
  1. CISPLATIN [Suspect]
     Dosage: 76 MG
  2. DOXORUBICIN HYDROCHLORIDE [Suspect]
     Dosage: 68 MG
  3. TAXOL [Suspect]
     Dosage: 245 MG
  4. NEULASTA [Suspect]
     Dosage: 6 MG

REACTIONS (6)
  - DEHYDRATION [None]
  - DIARRHOEA [None]
  - FAILURE TO THRIVE [None]
  - NAUSEA [None]
  - NEUTROPENIA [None]
  - VOMITING [None]
